FAERS Safety Report 8200631-7 (Version None)
Quarter: 2012Q1

REPORT INFORMATION
  Report Type: 
  Country: None (occurrence: None)
  Receive Date: 20120312
  Receipt Date: 20120301
  Transmission Date: 20120608
  Serious: Yes (Hospitalization)
  Sender: FDA-Public Use
  Company Number: JP-BRISTOL-MYERS SQUIBB COMPANY-15895824

PATIENT
  Age: 2 Year
  Sex: Male
  Weight: 2 kg

DRUGS (8)
  1. BUFEXAMAC [Concomitant]
     Indication: ECZEMA INFANTILE
     Route: 061
     Dates: start: 20100611
  2. TORSEMIDE [Suspect]
     Route: 064
     Dates: end: 20090318
  3. ROSUVASTATIN CALCIUM [Suspect]
     Route: 064
     Dates: end: 20090119
  4. FAMOTIDINE [Suspect]
     Route: 064
     Dates: end: 20090119
  5. ALLOPURINOL [Suspect]
     Route: 064
  6. LOCOID [Concomitant]
     Indication: ECZEMA INFANTILE
     Route: 061
     Dates: start: 20100611
  7. BARACLUDE [Suspect]
     Route: 064
     Dates: end: 20090318
  8. BENZBROMARONE [Suspect]
     Route: 064

REACTIONS (3)
  - PREMATURE BABY [None]
  - LOW BIRTH WEIGHT BABY [None]
  - NEONATAL TACHYPNOEA [None]
